FAERS Safety Report 11127931 (Version 1)
Quarter: 2015Q2

REPORT INFORMATION
  Report Type: Spontaneous
  Country: RS (occurrence: RS)
  Receive Date: 20150521
  Receipt Date: 20150521
  Transmission Date: 20150821
  Serious: Yes (Death, Other)
  Sender: FDA-Public Use
  Company Number: RS-MYLANLABS-2015M1016597

PATIENT

DRUGS (6)
  1. DACTINOMYCIN [Suspect]
     Active Substance: DACTINOMYCIN
     Indication: METASTATIC CHORIOCARCINOMA
     Route: 065
  2. VINCRISTINE [Suspect]
     Active Substance: VINCRISTINE
     Indication: METASTATIC CHORIOCARCINOMA
     Route: 065
  3. METHOTREXATE [Suspect]
     Active Substance: METHOTREXATE
     Indication: METASTATIC CHORIOCARCINOMA
     Route: 065
  4. FOLINIC ACID [Suspect]
     Active Substance: LEUCOVORIN
     Indication: METASTATIC CHORIOCARCINOMA
     Route: 065
  5. CYCLOPHOSPHAMIDE. [Suspect]
     Active Substance: CYCLOPHOSPHAMIDE
     Indication: METASTATIC CHORIOCARCINOMA
     Route: 065
  6. ETOPOSIDE. [Suspect]
     Active Substance: ETOPOSIDE
     Indication: METASTATIC CHORIOCARCINOMA
     Route: 065

REACTIONS (5)
  - Hepatic failure [Fatal]
  - Tumour necrosis [Fatal]
  - Infection [Fatal]
  - Generalised tonic-clonic seizure [Unknown]
  - Pancytopenia [Unknown]
